FAERS Safety Report 10926068 (Version 3)
Quarter: 2016Q1

REPORT INFORMATION
  Report Type: Spontaneous
  Country: US (occurrence: US)
  Receive Date: 20150318
  Receipt Date: 20160108
  Transmission Date: 20160525
  Serious: Yes (Hospitalization, Other)
  Sender: FDA-Public Use
  Company Number: US-PFIZER INC-2015091972

PATIENT
  Age: 67 Year
  Sex: Female
  Weight: 76 kg

DRUGS (39)
  1. VITAMIN C [Concomitant]
     Active Substance: ASCORBIC ACID
     Dosage: 1000 MG,SEVERAL A DAY
     Route: 048
  2. CRANBERRY. [Concomitant]
     Active Substance: CRANBERRY
     Indication: UROGENITAL DISORDER
     Dosage: 84 MG, UNK
     Route: 048
  3. ALPHA LIPOIC ACID [Concomitant]
     Active Substance: .ALPHA.-LIPOIC ACID
     Indication: DIABETES MELLITUS
     Dosage: UNK, 2X/DAY
  4. BIOTIN [Concomitant]
     Active Substance: BIOTIN
     Indication: HAIR DISORDER
     Dosage: UNK
     Route: 048
  5. COD LIVER OIL [Concomitant]
     Active Substance: COD LIVER OIL
     Dosage: UNK
     Route: 048
  6. GLUCOSAMINE [Concomitant]
     Active Substance: GLUCOSAMINE
     Indication: LOWER LIMB FRACTURE
     Dosage: UNK
     Route: 048
  7. BILBERRY [Concomitant]
     Active Substance: BILBERRY
     Dosage: 1000 MG, 2X/DAY
     Route: 048
  8. FISH OIL [Concomitant]
     Active Substance: FISH OIL
     Dosage: 600 MG, UNK
     Route: 048
  9. MELATONIN [Concomitant]
     Active Substance: MELATONIN
     Indication: INSOMNIA
     Dosage: 1 MG, UNK
     Route: 048
  10. GRAPE SEED [Concomitant]
     Dosage: UNK
     Route: 048
  11. TURMERIC [Concomitant]
     Active Substance: TURMERIC
     Dosage: UNK
     Route: 048
  12. METFORMIN [Concomitant]
     Active Substance: METFORMIN HYDROCHLORIDE
     Indication: DIABETES MELLITUS
     Dosage: 500 MG, 3X/DAY
     Route: 048
  13. MOVE FREE MAINTAINS + REPAIRS [Concomitant]
     Indication: LOWER LIMB FRACTURE
     Dosage: UNK
     Route: 048
  14. VITAMIN C [Concomitant]
     Active Substance: ASCORBIC ACID
     Dosage: 2000 MG, 2X/DAY
     Route: 048
  15. VITAMIN D3 [Concomitant]
     Active Substance: CHOLECALCIFEROL
     Dosage: 5000 IU, 1X/DAY
     Route: 048
  16. GARLIC. [Concomitant]
     Active Substance: GARLIC
     Dosage: UNK
     Route: 048
  17. FLAXSEED [Concomitant]
     Active Substance: FLAX SEED
     Dosage: 1000 MG, UNK
     Route: 048
  18. VITAMIN B12 [Concomitant]
     Active Substance: CYANOCOBALAMIN
     Dosage: 100 MG, 1X/DAY
  19. CHLORTHALIDONE. [Concomitant]
     Active Substance: CHLORTHALIDONE
     Indication: HYPERTENSION
     Dosage: 25 MG, 1X/DAY
     Route: 048
  20. EVENING PRIMROSE OIL [Concomitant]
     Active Substance: EVENING PRIMROSE OIL
     Indication: MENOPAUSE
     Dosage: 500 MG, 2X/DAY
     Route: 048
  21. EVENING PRIMROSE OIL [Concomitant]
     Active Substance: EVENING PRIMROSE OIL
     Dosage: 1000 MG, 1X/DAY
  22. TYLENOL EXTRA STRENGTH [Concomitant]
     Active Substance: ACETAMINOPHEN
     Dosage: UNK, AS NEEDED (OFF AND ON)
     Route: 048
  23. NATURE MADE CALCIUM WITH VITAMIN D [Concomitant]
     Dosage: UNK
     Route: 048
  24. GINKO BILOBA [Concomitant]
     Active Substance: GINKGO
     Indication: MEMORY IMPAIRMENT
     Dosage: 120 MG, 1X/DAY
  25. AROMASIN [Suspect]
     Active Substance: EXEMESTANE
     Indication: BREAST CANCER
     Dosage: 25 MG, 1X/DAY (IN THE EVENING)
     Route: 048
     Dates: start: 2013, end: 2014
  26. LISINOPRIL. [Concomitant]
     Active Substance: LISINOPRIL
     Indication: HYPERTENSION
     Dosage: 5 MG, 1X/DAY
     Route: 048
  27. CHROMIUM/CINNAMON [Concomitant]
     Indication: BLOOD GLUCOSE FLUCTUATION
     Dosage: 500 MG, 2X/DAY
  28. COENZYME Q10 [Concomitant]
     Active Substance: UBIDECARENONE
     Dosage: 200 MG, 1X/DAY
  29. ZINC [Concomitant]
     Active Substance: ZINC\ZINC CHLORIDE
     Dosage: UNK
  30. BLACK COHOSH EXTRACT [Concomitant]
     Indication: MENOPAUSE
  31. ASPIRIN. [Concomitant]
     Active Substance: ASPIRIN
     Dosage: 81 MG, 1X/DAY
     Route: 048
  32. BORAGE OIL [Concomitant]
     Active Substance: BORAGE OIL
     Indication: MENOPAUSE
     Dosage: 500 MG, 2X/DAY
  33. AROMASIN [Suspect]
     Active Substance: EXEMESTANE
     Dosage: 25 MG, 1X/DAY
     Route: 048
     Dates: start: 20141201
  34. LUTEIN [Concomitant]
     Active Substance: LUTEIN
     Indication: EYE DISORDER
     Dosage: UNK
     Route: 048
  35. COCONUT OIL [Concomitant]
     Active Substance: COCONUT OIL
     Dosage: UNK, 2X/DAY (2 GEL CAPS)
     Route: 048
  36. ZEAXANTHIN [Concomitant]
     Active Substance: ZEAXANTHIN
     Indication: EYE DISORDER
     Dosage: UNK
     Route: 048
  37. CHROMIUM/CINNAMON [Concomitant]
     Indication: DIABETES MELLITUS
  38. FLAXSEED [Concomitant]
     Active Substance: FLAX SEED
     Indication: MENOPAUSE
     Dosage: 884 MG, 2X/DAY
  39. MAGNESIUM [Concomitant]
     Active Substance: MAGNESIUM
     Dosage: UNK

REACTIONS (6)
  - Cough [Unknown]
  - Nasopharyngitis [Unknown]
  - Cataract [Recovered/Resolved]
  - Drug dose omission [Unknown]
  - Hot flush [Not Recovered/Not Resolved]
  - Breast mass [Unknown]

NARRATIVE: CASE EVENT DATE: 2013
